FAERS Safety Report 18946803 (Version 1)
Quarter: 2021Q1

REPORT INFORMATION
  Report Type: Spontaneous
  Country: US (occurrence: US)
  Receive Date: 20210226
  Receipt Date: 20210226
  Transmission Date: 20210420
  Serious: No
  Sender: FDA-Public Use
  Company Number: US-EVOLUS, INC.-2020EV000647

PATIENT
  Age: 37 Year
  Sex: Female

DRUGS (2)
  1. JEUVEAU [Suspect]
     Active Substance: PRABOTULINUMTOXINA-XVFS
     Indication: SKIN WRINKLING
     Dosage: 1ST VISIT: 24 UNITS FOR GLABELLAR LINES, 16 UNIT FOR FOREHEAD.
  2. JEUVEAU [Suspect]
     Active Substance: PRABOTULINUMTOXINA-XVFS
     Indication: PRODUCT USED FOR UNKNOWN INDICATION
     Dosage: 2ND VISIT: 12 UNITS FOR GLABELLAR LINES

REACTIONS (2)
  - Off label use [Unknown]
  - Drug effect less than expected [Unknown]
